FAERS Safety Report 9420268 (Version 1)
Quarter: 2013Q3

REPORT INFORMATION
  Report Type: Spontaneous
  Country: US (occurrence: US)
  Receive Date: 20130725
  Receipt Date: 20130725
  Transmission Date: 20140515
  Serious: No
  Sender: FDA-Public Use
  Company Number: US-PFIZER INC-2013215686

PATIENT
  Age: 71 Year
  Sex: Female

DRUGS (7)
  1. NORVASC [Suspect]
     Dosage: UNK
  2. LISINOPRIL [Suspect]
     Dosage: UNK
  3. HYDROCHLOROTHIAZIDE [Suspect]
     Dosage: UNK
  4. ROBAXIN [Suspect]
     Dosage: UNK
  5. INDOCIN [Suspect]
     Dosage: UNK
  6. PERCODAN [Suspect]
     Dosage: UNK
  7. DIAZIDE [Suspect]
     Dosage: UNK

REACTIONS (1)
  - Drug hypersensitivity [Unknown]
